FAERS Safety Report 8373829-5 (Version None)
Quarter: 2012Q2

REPORT INFORMATION
  Report Type: 
  Country: None (occurrence: None)
  Receive Date: 20120521
  Receipt Date: 20120511
  Transmission Date: 20120825
  Serious: Yes (Hospitalization)
  Sender: FDA-Public Use
  Company Number: US-ACTELION-A-NJ2011-55213

PATIENT

DRUGS (3)
  1. EPOPROSTENOL SODIUM [Suspect]
     Indication: PULMONARY ARTERIAL HYPERTENSION
     Dosage: 17 NG/KG, PER MIN
     Route: 041
     Dates: start: 20100527
  2. ADCIRCA [Concomitant]
  3. COUMADIN [Concomitant]

REACTIONS (7)
  - MOUTH ULCERATION [None]
  - CATHETER SITE INFECTION [None]
  - CATHETER SITE DISCHARGE [None]
  - CATHETER SITE PAIN [None]
  - CATHETER SITE SWELLING [None]
  - CATHETER SITE ERYTHEMA [None]
  - DEHYDRATION [None]
